FAERS Safety Report 6526091-X (Version None)
Quarter: 2010Q1

REPORT INFORMATION
  Report Type: 
  Country: None (occurrence: None)
  Receive Date: 20100104
  Receipt Date: 20091221
  Transmission Date: 20100710
  Serious: Yes (Other)
  Sender: FDA-Public Use
  Company Number: JP-SANOFI-AVENTIS-2009SA011226

PATIENT
  Sex: Male

DRUGS (8)
  1. OXALIPLATIN [Suspect]
     Indication: RECTAL CANCER
     Dates: start: 20081001, end: 20081001
  2. OXALIPLATIN [Suspect]
  3. CALCIUM LEVOFOLINATE [Concomitant]
     Indication: RECTAL CANCER
     Dates: start: 20081001, end: 20081001
  4. CALCIUM LEVOFOLINATE [Concomitant]
  5. FLUOROURACIL [Concomitant]
     Indication: RECTAL CANCER
     Dates: start: 20081001, end: 20081001
  6. FLUOROURACIL [Concomitant]
  7. BROTIZOLAM [Concomitant]
     Indication: INSOMNIA
     Route: 048
     Dates: start: 20090301
  8. CLOTIAZEPAM [Concomitant]
     Indication: MENTAL DISORDER
     Route: 048
     Dates: start: 20090301

REACTIONS (1)
  - MIDDLE INSOMNIA [None]
